FAERS Safety Report 5959214-1 (Version None)
Quarter: 2008Q4

REPORT INFORMATION
  Report Type: 
  Country: None (occurrence: None)
  Receive Date: 20081120
  Receipt Date: 20080715
  Transmission Date: 20090506
  Serious: No
  Sender: FDA-Public Use
  Company Number: A0737699A

PATIENT
  Age: 49 Year
  Sex: Female

DRUGS (7)
  1. WELLBUTRIN SR [Suspect]
     Dosage: 300MG PER DAY
     Route: 048
  2. VITAMINS [Concomitant]
  3. CALCIUM [Concomitant]
  4. MAGNESIUM SULFATE [Concomitant]
  5. UNKNOWN MEDICATION [Concomitant]
  6. LIPITOR [Concomitant]
  7. FLUTICASONE PROPIONATE [Concomitant]
     Route: 045

REACTIONS (3)
  - HYPOAESTHESIA [None]
  - MALAISE [None]
  - OVERDOSE [None]
